FAERS Safety Report 9413175 (Version 1)
Quarter: 2013Q3

REPORT INFORMATION
  Report Type: Report from Study
  Country: AU (occurrence: AU)
  Receive Date: 20130722
  Receipt Date: 20130722
  Transmission Date: 20140515
  Serious: Yes (Other)
  Sender: FDA-Public Use
  Company Number: PHHY2013AU025985

PATIENT
  Age: 73 Year
  Sex: Female
  Weight: 33 kg

DRUGS (11)
  1. ACLASTA [Suspect]
     Dosage: 5 MG
     Route: 042
     Dates: start: 20100914
  2. ACLASTA [Suspect]
     Dosage: 5 MG
     Route: 042
     Dates: start: 20110322
  3. ACLASTA [Suspect]
     Dosage: 5 MG
     Route: 042
  4. NEO MERCAZOLE [Concomitant]
     Dosage: 5 MG, UNK
  5. SOMAC [Concomitant]
  6. TARGIN [Concomitant]
  7. PREDNISOLONE [Concomitant]
  8. OSTELIN VITAMIN D [Concomitant]
  9. SYMBICORT [Concomitant]
  10. DOXY [Concomitant]
  11. SUSTAGEN [Concomitant]

REACTIONS (4)
  - Gastritis [Recovered/Resolved]
  - Hyperchlorhydria [Unknown]
  - Blood iron decreased [Unknown]
  - Inappropriate schedule of drug administration [Unknown]
